FAERS Safety Report 6158476-8 (Version None)
Quarter: 2009Q2

REPORT INFORMATION
  Report Type: 
  Country: None (occurrence: None)
  Receive Date: 20090417
  Receipt Date: 20090407
  Transmission Date: 20091009
  Serious: Yes (Hospitalization)
  Sender: FDA-Public Use
  Company Number: GB-BAYER-200910523BNE

PATIENT
  Age: 70 Year
  Sex: Male

DRUGS (1)
  1. SORAFENIB [Suspect]
     Indication: DRUG USE FOR UNKNOWN INDICATION
     Route: 048
     Dates: start: 20060615

REACTIONS (1)
  - CHOLELITHIASIS [None]
